FAERS Safety Report 22234018 (Version 1)
Quarter: 2023Q2

REPORT INFORMATION
  Report Type: Spontaneous
  Country: US (occurrence: None)
  Receive Date: 20230418
  Receipt Date: 20230418
  Transmission Date: 20230722
  Serious: Yes (Hospitalization)
  Sender: FDA-Public Use
  Company Number: None

PATIENT
  Sex: Female

DRUGS (10)
  1. TRANEXAMIC ACID [Suspect]
     Active Substance: TRANEXAMIC ACID
     Indication: Product used for unknown indication
     Dosage: 1000 MG/10ML INTRAVENOUS??INHALE 5ML(500 MG) IN LUNG TWICE DAILY
     Route: 042
  2. AMLODIPINE TAB [Concomitant]
  3. CYMBALTA CAP [Concomitant]
  4. DEPLIN 7.5 CAP [Concomitant]
  5. LAMICTAL XR TAB [Concomitant]
  6. LEVALBUTEROL NEB [Concomitant]
  7. LORAZEPAM TAB [Concomitant]
  8. SEROQUEL TAB [Concomitant]
  9. STOOL SOFTNR CAP [Concomitant]
  10. SYMBICORT AER [Concomitant]

REACTIONS (3)
  - Coagulation factor deficiency [None]
  - Spontaneous haemorrhage [None]
  - Product prescribing issue [None]
